FAERS Safety Report 6423527-X (Version None)
Quarter: 2009Q4

REPORT INFORMATION
  Report Type: 
  Country: None (occurrence: None)
  Receive Date: 20091102
  Receipt Date: 20081203
  Transmission Date: 20100525
  Serious: No
  Sender: FDA-Public Use
  Company Number: A0757862A

PATIENT
  Age: 75 Year
  Sex: Male

DRUGS (8)
  1. RYTHMOL SR [Suspect]
     Indication: CARDIOVERSION
     Dosage: 650 PER DAY
     Route: 048
     Dates: start: 20081111, end: 20081118
  2. WARFARIN SODIUM [Concomitant]
  3. CRESTOR [Concomitant]
  4. ASPIRIN [Concomitant]
  5. GLIMEPIRIDE [Concomitant]
  6. BENICAR [Concomitant]
  7. TRAVATAN [Concomitant]
  8. ALLERGAN [Concomitant]

REACTIONS (4)
  - DRUG HYPERSENSITIVITY [None]
  - FATIGUE [None]
  - NAUSEA [None]
  - SOMNOLENCE [None]
